FAERS Safety Report 24916913 (Version 1)
Quarter: 2025Q1

REPORT INFORMATION
  Report Type: Spontaneous
  Country: US (occurrence: None)
  Receive Date: 20250131
  Receipt Date: 20250131
  Transmission Date: 20250409
  Serious: Yes (Disabling)
  Sender: FDA-CTU
  Company Number: None

PATIENT
  Age: 62 Year
  Sex: Male
  Weight: 81 kg

DRUGS (18)
  1. VYVGART HYTRULO [Suspect]
     Active Substance: EFGARTIGIMOD ALFA\HYALURONIDASE-QVFC
     Indication: Chronic inflammatory demyelinating polyradiculoneuropathy
     Route: 058
  2. LANTUS [Concomitant]
     Active Substance: INSULIN GLARGINE
  3. NOVOLOG [Concomitant]
     Active Substance: INSULIN ASPART
  4. OZEMPIC [Concomitant]
     Active Substance: SEMAGLUTIDE
  5. LEVOTHYROXINE [Concomitant]
     Active Substance: LEVOTHYROXINE
  6. MELOXICAM [Concomitant]
     Active Substance: MELOXICAM
  7. FUROSEMIDE [Concomitant]
     Active Substance: FUROSEMIDE
  8. LISINOPRIL [Concomitant]
     Active Substance: LISINOPRIL
  9. PRAMIPEXOLE [Concomitant]
     Active Substance: PRAMIPEXOLE
  10. ATORVASTATIN [Concomitant]
     Active Substance: ATORVASTATIN
  11. PREGABALIN [Concomitant]
     Active Substance: PREGABALIN
  12. TRAMADOL [Concomitant]
     Active Substance: TRAMADOL
  13. ALPRAZOLAM [Concomitant]
     Active Substance: ALPRAZOLAM
  14. RIZATRIPTAN [Concomitant]
     Active Substance: RIZATRIPTAN
  15. CLOBETASOL [Concomitant]
     Active Substance: CLOBETASOL
  16. gammaples [Concomitant]
  17. ADVIL [Concomitant]
     Active Substance: IBUPROFEN
  18. TYLENOL [Concomitant]
     Active Substance: ACETAMINOPHEN

REACTIONS (6)
  - General physical health deterioration [None]
  - Mobility decreased [None]
  - Migraine with aura [None]
  - Hypoaesthesia [None]
  - Cognitive disorder [None]
  - Rash [None]

NARRATIVE: CASE EVENT DATE: 20240601
